FAERS Safety Report 5458555-4 (Version None)
Quarter: 2007Q3

REPORT INFORMATION
  Report Type: 
  Country: None (occurrence: None)
  Receive Date: 20070919
  Receipt Date: 20070910
  Transmission Date: 20080115
  Serious: Yes (Death)
  Sender: FDA-Public Use
  Company Number: US-AMGEN-STX242664

PATIENT
  Sex: Female

DRUGS (11)
  1. ENBREL [Suspect]
     Indication: RHEUMATOID ARTHRITIS
     Route: 065
  2. METHOTREXATE [Concomitant]
     Route: 065
  3. PREDNISONE [Concomitant]
     Route: 065
  4. PAXIL [Concomitant]
     Route: 065
  5. OXYCONTIN [Concomitant]
     Route: 065
  6. DEMEROL [Concomitant]
     Route: 065
  7. CELEBREX [Concomitant]
     Route: 065
  8. ASPIRIN [Concomitant]
     Route: 065
  9. HYDROCHLOROTHIAZIDE [Concomitant]
     Route: 065
  10. FOLIC ACID [Concomitant]
     Route: 065
  11. PRILOSEC [Concomitant]
     Route: 065

REACTIONS (1)
  - DEATH [None]
